FAERS Safety Report 11126382 (Version 2)
Quarter: 2015Q2

REPORT INFORMATION
  Report Type: Report from Study
  Country: US (occurrence: US)
  Receive Date: 20150520
  Receipt Date: 20150611
  Transmission Date: 20150821
  Serious: Yes (Other)
  Sender: FDA-Public Use
  Company Number: US-BAYER-2015-030865

PATIENT
  Age: 66 Year
  Sex: Male

DRUGS (3)
  1. NEXAVAR [Suspect]
     Active Substance: SORAFENIB
     Indication: HEPATOCELLULAR CARCINOMA
     Dosage: 400 MG, BID
     Route: 048
     Dates: start: 20150312, end: 20150427
  2. NEXAVAR [Suspect]
     Active Substance: SORAFENIB
     Indication: HEPATOCELLULAR CARCINOMA
     Dosage: 200 MG, BID
     Route: 048
     Dates: start: 20150218, end: 20150311
  3. NEXAVAR [Suspect]
     Active Substance: SORAFENIB
     Indication: HEPATOCELLULAR CARCINOMA
     Dosage: 400MG/AM, 200MG/PM
     Route: 048
     Dates: start: 20150428

REACTIONS (31)
  - Tongue coated [None]
  - Decreased appetite [None]
  - Musculoskeletal pain [Not Recovered/Not Resolved]
  - Odynophagia [None]
  - Diarrhoea [None]
  - Candida infection [Recovering/Resolving]
  - Gingival bleeding [None]
  - Nausea [Recovered/Resolved]
  - Metastases to bone [None]
  - Hypoaesthesia [Not Recovered/Not Resolved]
  - Asthenia [None]
  - Vomiting [Recovered/Resolved]
  - Oral pain [None]
  - Malaise [None]
  - Weight decreased [Not Recovered/Not Resolved]
  - Skin lesion [None]
  - Blood glucose decreased [None]
  - Chest pain [None]
  - Arthralgia [Not Recovered/Not Resolved]
  - Wound secretion [None]
  - Yellow skin [None]
  - Headache [None]
  - Diarrhoea [Not Recovered/Not Resolved]
  - Abdominal discomfort [Not Recovered/Not Resolved]
  - Fatigue [Not Recovered/Not Resolved]
  - Arthralgia [None]
  - Headache [Recovered/Resolved]
  - Bone pain [Not Recovered/Not Resolved]
  - Increased viscosity of bronchial secretion [None]
  - Blood pressure increased [Not Recovered/Not Resolved]
  - Abdominal pain [None]

NARRATIVE: CASE EVENT DATE: 2015
